FAERS Safety Report 13150399 (Version 1)
Quarter: 2017Q1

REPORT INFORMATION
  Report Type: Spontaneous
  Country: CN (occurrence: CN)
  Receive Date: 20170125
  Receipt Date: 20170125
  Transmission Date: 20170428
  Serious: Yes (Other)
  Sender: FDA-Public Use
  Company Number: CN-BAYER-2017-009850

PATIENT
  Age: 82 Year
  Sex: Male
  Weight: 65 kg

DRUGS (7)
  1. GLUCOBAY [Suspect]
     Active Substance: ACARBOSE
     Dosage: 100 MG, CHEWING AT FIRST BITE IN THREE MEALS EVERY DAY
     Route: 048
  2. INSULIN GLARGINE [Suspect]
     Active Substance: INSULIN GLARGINE
     Dosage: 10 U, BEFORE SLEEP IN (26/6)
  3. SIMVASTATIN. [Suspect]
     Active Substance: SIMVASTATIN
     Dosage: 40 MG, QN
     Route: 048
  4. CLOPIDOGREL [Suspect]
     Active Substance: CLOPIDOGREL BISULFATE
     Dosage: 50 MG, QD
     Route: 048
  5. METFORMIN [Suspect]
     Active Substance: METFORMIN HYDROCHLORIDE
     Dosage: 500 MG, BID
     Route: 048
  6. BAYASPIRIN 100 MG [Suspect]
     Active Substance: ASPIRIN
     Dosage: 100 MG, QD
     Route: 048
  7. METOPROLOL. [Suspect]
     Active Substance: METOPROLOL
     Dosage: 12.5 MG, BID
     Route: 048

REACTIONS (6)
  - Peripheral arterial occlusive disease [None]
  - Flatulence [Recovering/Resolving]
  - Degenerative aortic valve disease [None]
  - Type 2 diabetes mellitus [None]
  - Degenerative mitral valve disease [None]
  - Coronary artery disease [None]
